FAERS Safety Report 7394256-3 (Version None)
Quarter: 2011Q2

REPORT INFORMATION
  Report Type: 
  Country: None (occurrence: None)
  Receive Date: 20110405
  Receipt Date: 20110331
  Transmission Date: 20111010
  Serious: Yes (Death)
  Sender: FDA-Public Use
  Company Number: PT-PFIZER INC-2011071810

PATIENT
  Age: 51 Year
  Sex: Female
  Weight: 51 kg

DRUGS (1)
  1. DIFLUCAN [Suspect]
     Indication: PROPHYLAXIS
     Dosage: 200 MG, UID/QD
     Route: 042
     Dates: start: 20110223, end: 20110227

REACTIONS (1)
  - DEATH [None]
